FAERS Safety Report 4710715-3 (Version None)
Quarter: 2005Q3

REPORT INFORMATION
  Report Type: 
  Country: None (occurrence: None)
  Receive Date: 20050711
  Receipt Date: 20040401
  Transmission Date: 20060218
  Serious: Yes (Hospitalization, Disabling, Other)
  Sender: FDA-Public Use
  Company Number: PHFR2004GB01704

PATIENT
  Age: 48 Year
  Sex: Female

DRUGS (7)
  1. CARACE [Concomitant]
     Dates: start: 19950101, end: 20040301
  2. ATENOLOL [Concomitant]
     Indication: HYPERTENSION
     Dosage: 50MG/DAY
     Dates: start: 20000121
  3. LESCOL [Suspect]
     Indication: HYPERCHOLESTEROLAEMIA
     Dosage: 20 MG/DAY
     Route: 048
     Dates: start: 20040309, end: 20040318
  4. LANSOPRAZOLE [Concomitant]
     Indication: HIATUS HERNIA
     Dosage: 15 MG/DAY
     Route: 048
     Dates: start: 20031010
  5. ASPIRIN [Concomitant]
     Indication: DIABETES MELLITUS
     Dosage: 150 MG/DAY
     Route: 048
     Dates: start: 19991122
  6. HUMALOG NPL PEN [Concomitant]
     Indication: DIABETES MELLITUS
     Dosage: 64 UNITS
     Dates: start: 20030707
  7. INSULIN GLARGINE [Concomitant]
     Indication: DIABETES MELLITUS
     Dates: start: 20031030

REACTIONS (12)
  - ABDOMINAL PAIN UPPER [None]
  - BLOOD GLUCOSE INCREASED [None]
  - C-REACTIVE PROTEIN INCREASED [None]
  - CONDITION AGGRAVATED [None]
  - FATIGUE [None]
  - MUSCLE ATROPHY [None]
  - MUSCULAR WEAKNESS [None]
  - MYALGIA [None]
  - MYOPATHY [None]
  - OEDEMA PERIPHERAL [None]
  - TREMOR [None]
  - VISUAL DISTURBANCE [None]
